FAERS Safety Report 19001046 (Version 2)
Quarter: 2021Q1

REPORT INFORMATION
  Report Type: Report from Study
  Country: GB (occurrence: GB)
  Receive Date: 20210311
  Receipt Date: 20210325
  Transmission Date: 20210420
  Serious: Yes (Death, Other)
  Sender: FDA-Public Use
  Company Number: GB-BAXTER-2021BAX004915

PATIENT
  Age: 70 Year
  Sex: Female

DRUGS (3)
  1. DOXIL [Suspect]
     Active Substance: DOXORUBICIN HYDROCHLORIDE
     Indication: SOFT TISSUE SARCOMA
     Dosage: CYCLICAL
     Route: 042
  2. OLARATUMAB [Suspect]
     Active Substance: OLARATUMAB
     Dosage: IN SUBSEQUENT CYCLES
     Route: 042
  3. OLARATUMAB [Suspect]
     Active Substance: OLARATUMAB
     Indication: SOFT TISSUE SARCOMA
     Dosage: ON DAY 1 AND 8, FOR CYCLE 1
     Route: 042

REACTIONS (2)
  - Cardiac failure acute [Fatal]
  - Febrile neutropenia [Unknown]
